FAERS Safety Report 8024322-0 (Version None)
Quarter: 2012Q1

REPORT INFORMATION
  Report Type: 
  Country: None (occurrence: None)
  Receive Date: 20120103
  Receipt Date: 20111220
  Transmission Date: 20120608
  Serious: Yes (Hospitalization)
  Sender: FDA-Public Use
  Company Number: 2011SP051864

PATIENT
  Age: 54 Year
  Sex: Female

DRUGS (12)
  1. VICTRELIS [Suspect]
     Indication: HEPATITIS C
     Dosage: 800 MG, TID, PO
     Route: 048
     Dates: start: 20111020
  2. LOMOTIL [Concomitant]
  3. LISINOPRIL [Concomitant]
  4. PHENERGAN [Concomitant]
  5. MEDROL [Concomitant]
  6. RIBAVIRIN [Suspect]
     Indication: HEPATITIS C
     Dosage: 200 MG, PO
     Route: 048
     Dates: start: 20110909
  7. PEGASYS [Suspect]
     Indication: HEPATITIS C
     Dosage: 180 MCG, QW,SC
     Route: 058
     Dates: start: 20110909
  8. ALBUTEROL [Concomitant]
  9. LANTUS [Concomitant]
  10. PEPCID [Concomitant]
  11. NOVOLOG [Concomitant]
  12. SYMBICORT [Concomitant]

REACTIONS (6)
  - ABDOMINAL PAIN [None]
  - STAPHYLOCOCCAL INFECTION [None]
  - CELLULITIS [None]
  - ABDOMINAL PAIN UPPER [None]
  - HAEMOGLOBIN DECREASED [None]
  - DIARRHOEA [None]
